FAERS Safety Report 7812143-0 (Version None)
Quarter: 2011Q4

REPORT INFORMATION
  Report Type: 
  Country: None (occurrence: None)
  Receive Date: 20111013
  Receipt Date: 20110929
  Transmission Date: 20120403
  Serious: Yes (Other)
  Sender: FDA-Public Use
  Company Number: JP-UCBSA-043079

PATIENT

DRUGS (1)
  1. XYZAL [Suspect]
     Indication: URTICARIA
     Route: 048
     Dates: start: 20110101, end: 20110101

REACTIONS (2)
  - FORMICATION [None]
  - DRUG WITHDRAWAL SYNDROME [None]
